FAERS Safety Report 7914364-5 (Version None)
Quarter: 2011Q4

REPORT INFORMATION
  Report Type: 
  Country: None (occurrence: None)
  Receive Date: 20111115
  Receipt Date: 20111102
  Transmission Date: 20120403
  Serious: Yes (Other)
  Sender: FDA-Public Use
  Company Number: US-ELI_LILLY_AND_COMPANY-US201103007517

PATIENT
  Sex: Male

DRUGS (10)
  1. LEVEMIR [Concomitant]
     Indication: DIABETES MELLITUS
     Dosage: UNK
  2. ALLOPURINOL [Concomitant]
     Indication: GOUT
     Dosage: UNK
     Route: 048
  3. CYMBALTA [Concomitant]
     Indication: NEUROPATHY PERIPHERAL
     Dosage: UNK
     Route: 048
  4. BYETTA [Suspect]
     Dosage: 10 UG, BID
     Route: 058
     Dates: end: 20100507
  5. AVAPRO [Concomitant]
     Indication: HYPERTENSION
     Dosage: UNK
     Route: 048
  6. SIMVASTATIN [Concomitant]
     Dosage: UNK
  7. TESTIM [Concomitant]
     Dosage: UNK
     Route: 061
  8. VICTOZA [Concomitant]
     Indication: PRODUCT USED FOR UNKNOWN INDICATION
     Dosage: UNK
     Dates: start: 20100501
  9. BYETTA [Suspect]
     Indication: TYPE 2 DIABETES MELLITUS
     Dosage: 5 UG, BID
     Route: 058
  10. METFORMIN HCL [Concomitant]
     Indication: TYPE 2 DIABETES MELLITUS
     Dosage: UNK
     Route: 048

REACTIONS (3)
  - VOMITING [None]
  - RESPIRATORY TRACT INFECTION [None]
  - CONDUCTION DISORDER [None]
